FAERS Safety Report 9887527 (Version 1)
Quarter: 2013Q4

REPORT INFORMATION
  Report Type: Spontaneous
  Country: US (occurrence: None)
  Receive Date: 20131223
  Receipt Date: 20131223
  Transmission Date: 20140711
  Serious: Yes (Other)
  Sender: FDA-Public Use
  Company Number: 217522LEO

PATIENT
  Sex: Female

DRUGS (2)
  1. PICATO GEL [Suspect]
     Indication: ACTINIC KERATOSIS
     Dosage: GEL, ON ENTIRE FACE
     Dates: start: 20120507, end: 20120507
  2. PICATO GEL [Suspect]
     Indication: ACTINIC KERATOSIS
     Dosage: GEL, ON ENTIRE FACE
     Dates: start: 20120507, end: 20120507

REACTIONS (8)
  - Application site pain [None]
  - Application site erythema [None]
  - Application site vesicles [None]
  - Application site swelling [None]
  - Incorrect drug administration duration [None]
  - Drug administration error [None]
  - Drug administered at inappropriate site [None]
  - Eye swelling [None]
